FAERS Safety Report 6493441-2 (Version None)
Quarter: 2009Q4

REPORT INFORMATION
  Report Type: 
  Country: None (occurrence: None)
  Receive Date: 20091211
  Receipt Date: 20091211
  Transmission Date: 20100525
  Serious: Yes (Hospitalization)
  Sender: FDA-Public Use
  Company Number: None

PATIENT
  Sex: Female
  Weight: 67.5 kg

DRUGS (9)
  1. CISPLATIN [Suspect]
     Dosage: 140 MG
  2. ERBITUX [Suspect]
     Dosage: 2122 MG
  3. FLUOROURACIL [Suspect]
     Dosage: 7320 MG
  4. IV FLUIDS [Concomitant]
  5. ATIVAN [Concomitant]
  6. DILAUDID [Concomitant]
  7. KYTRIL [Concomitant]
  8. PEPCID [Concomitant]
  9. ZOFRAN [Concomitant]

REACTIONS (6)
  - ABDOMINAL PAIN [None]
  - ABDOMINAL TENDERNESS [None]
  - CONSTIPATION [None]
  - DECREASED APPETITE [None]
  - NAUSEA [None]
  - URINARY TRACT INFECTION [None]
